FAERS Safety Report 7712035-1 (Version None)
Quarter: 2011Q3

REPORT INFORMATION
  Report Type: 
  Country: None (occurrence: None)
  Receive Date: 20110822
  Receipt Date: 20110809
  Transmission Date: 20111222
  Serious: Yes (Death)
  Sender: FDA-Public Use
  Company Number: B0740157A

PATIENT
  Age: 53 Year
  Sex: Male

DRUGS (2)
  1. DILTIAZEM HYDROCHLORIDE [Suspect]
     Dosage: ORAL
     Route: 048
  2. PROPRANOLOL HYDROCHLORIDE [Suspect]
     Dosage: ORAL
     Route: 048

REACTIONS (5)
  - MULTI-ORGAN FAILURE [None]
  - BRADYCARDIA [None]
  - HYPOTENSION [None]
  - CARDIAC ARREST [None]
  - OVERDOSE [None]
